FAERS Safety Report 10261328 (Version 1)
Quarter: 2014Q2

REPORT INFORMATION
  Report Type: Spontaneous
  Country: US (occurrence: US)
  Receive Date: 20140626
  Receipt Date: 20140626
  Transmission Date: 20141212
  Serious: Yes (Hospitalization)
  Sender: FDA-Public Use
  Company Number: US-ZOGENIX, INC.-2014ZX000183

PATIENT
  Sex: Female
  Weight: 61.29 kg

DRUGS (2)
  1. SUMAVEL DOSEPRO [Suspect]
     Indication: MIGRAINE
     Route: 058
     Dates: start: 2013
  2. IMITREX [Concomitant]
     Indication: MIGRAINE
     Route: 048

REACTIONS (1)
  - Psychiatric symptom [Unknown]
